FAERS Safety Report 10507999 (Version 1)
Quarter: 2014Q3

REPORT INFORMATION
  Report Type: Spontaneous
  Country: US (occurrence: None)
  Receive Date: 20140915
  Receipt Date: 20140915
  Transmission Date: 20150326
  Serious: Yes (Other)
  Sender: FDA-Public Use
  Company Number: 2014-US-001265

PATIENT
  Age: 33 Year
  Sex: Female
  Weight: 83.9 kg

DRUGS (6)
  1. XYREM [Suspect]
     Active Substance: SODIUM OXYBATE
     Indication: SOMNOLENCE
     Route: 048
     Dates: start: 201312
  2. OMEPRAZOLE. [Concomitant]
     Active Substance: OMEPRAZOLE
  3. MULTIVITAMIN [Concomitant]
     Active Substance: VITAMINS
  4. XYREM [Suspect]
     Active Substance: SODIUM OXYBATE
     Indication: NARCOLEPSY
     Route: 048
     Dates: start: 201312
  5. NUVIGIL [Concomitant]
     Active Substance: ARMODAFINIL
  6. CYMBALTA [Concomitant]
     Active Substance: DULOXETINE HYDROCHLORIDE

REACTIONS (10)
  - Speech disorder [None]
  - Nausea [None]
  - Vomiting [None]
  - Headache [None]
  - Dehydration [None]
  - Pain in extremity [None]
  - Decreased appetite [None]
  - Hangover [None]
  - Suicidal ideation [None]
  - Burning sensation [None]

NARRATIVE: CASE EVENT DATE: 20131222
